FAERS Safety Report 4626390-2 (Version None)
Quarter: 2005Q2

REPORT INFORMATION
  Report Type: 
  Country: None (occurrence: None)
  Receive Date: 20050325
  Receipt Date: 20050114
  Transmission Date: 20051028
  Serious: No
  Sender: FDA-Public Use
  Company Number: USA050188311

PATIENT
  Age: 73 Year
  Sex: Female

DRUGS (4)
  1. FORTEO [Suspect]
     Indication: OSTEOPOROSIS
     Dosage: 20 UG
     Dates: start: 20040101
  2. LANTUS [Concomitant]
  3. AMARYL [Concomitant]
  4. CYANOCOBALAMIN W/PYRIDOXINE [Concomitant]

REACTIONS (5)
  - ASTHENIA [None]
  - BLOOD CALCIUM INCREASED [None]
  - MUSCLE SPASMS [None]
  - MYALGIA [None]
  - NAUSEA [None]
